FAERS Safety Report 14375899 (Version 1)
Quarter: 2018Q1

REPORT INFORMATION
  Report Type: Spontaneous
  Country: US (occurrence: US)
  Receive Date: 20180110
  Receipt Date: 20180110
  Transmission Date: 20180509
  Serious: Yes (Other)
  Sender: FDA-Public Use
  Company Number: None

PATIENT
  Age: 62 Year
  Sex: Male

DRUGS (1)
  1. FERROUS SULFATE. [Suspect]
     Active Substance: FERROUS SULFATE
     Dosage: ?          OTHER ROUTE:NG?
     Dates: start: 20171216, end: 20180109

REACTIONS (2)
  - Burkholderia cepacia complex infection [None]
  - Product use issue [None]

NARRATIVE: CASE EVENT DATE: 20180109
